FAERS Safety Report 5078678-1 (Version None)
Quarter: 2006Q3

REPORT INFORMATION
  Report Type: 
  Country: None (occurrence: None)
  Receive Date: 20060809
  Receipt Date: 20060809
  Transmission Date: 20061208
  Serious: No
  Sender: FDA-Public Use
  Company Number: None

PATIENT
  Age: 43 Year
  Sex: Female
  Weight: 53 kg

DRUGS (1)
  1. GENTAMICIN [Suspect]
     Indication: STAPHYLOCOCCAL INFECTION
     Dosage: UNKNOWN
     Route: 065
     Dates: start: 19990501, end: 19990701

REACTIONS (7)
  - BALANCE DISORDER [None]
  - COMA [None]
  - GAIT DISTURBANCE [None]
  - IMPAIRED HEALING [None]
  - MEMORY IMPAIRMENT [None]
  - UNEVALUABLE EVENT [None]
  - VESTIBULAR DISORDER [None]
